FAERS Safety Report 4879640-1 (Version None)
Quarter: 2006Q1

REPORT INFORMATION
  Report Type: 
  Country: None (occurrence: None)
  Receive Date: 20060111
  Receipt Date: 20060102
  Transmission Date: 20060701
  Serious: Yes (Hospitalization)
  Sender: FDA-Public Use
  Company Number: 200610010BVD

PATIENT
  Age: 71 Year
  Sex: Male
  Weight: 64.3 kg

DRUGS (8)
  1. SORAFENIB [Suspect]
     Indication: METASTATIC RENAL CELL CARCINOMA
     Dosage: 400 MG, BID, ORAL
     Route: 048
     Dates: start: 20050912, end: 20051107
  2. SORAFENIB [Suspect]
     Indication: METASTATIC RENAL CELL CARCINOMA
     Dosage: 400 MG, BID, ORAL
     Route: 048
     Dates: start: 20051107
  3. CYNT ^BEIERSDORF^ [Concomitant]
  4. NEBILET [Concomitant]
  5. AMLODIPINE [Concomitant]
  6. L-THYROXIN [Concomitant]
  7. ALLOPURINOL [Concomitant]
  8. BALDRIAN-DISPERT [Concomitant]

REACTIONS (1)
  - CEREBROVASCULAR ACCIDENT [None]
